FAERS Safety Report 4677194-6 (Version None)
Quarter: 2005Q2

REPORT INFORMATION
  Report Type: 
  Country: None (occurrence: None)
  Receive Date: 20050531
  Receipt Date: 20050518
  Transmission Date: 20051028
  Serious: Yes (Life-Threatening, Hospitalization)
  Sender: FDA-Public Use
  Company Number: US-JNJFOC-20050202077

PATIENT
  Sex: Male
  Weight: 136.08 kg

DRUGS (3)
  1. REMICADE [Suspect]
     Indication: DRUG USE FOR UNKNOWN INDICATION
     Route: 042
  2. BENADRYL [Suspect]
     Indication: PREMEDICATION
     Dosage: PRN
     Route: 042
  3. TYLENOL (CAPLET) [Concomitant]

REACTIONS (2)
  - CARDIO-RESPIRATORY ARREST [None]
  - SLEEP APNOEA SYNDROME [None]
